FAERS Safety Report 24743394 (Version 2)
Quarter: 2025Q2

REPORT INFORMATION
  Report Type: Spontaneous
  Country: KR (occurrence: KR)
  Receive Date: 20241217
  Receipt Date: 20250418
  Transmission Date: 20250717
  Serious: Yes (Other)
  Sender: PFIZER
  Company Number: KR-PFIZER INC-PV202400021749

PATIENT
  Age: 68 Year
  Sex: Male

DRUGS (12)
  1. IBRANCE [Suspect]
     Active Substance: PALBOCICLIB
     Indication: Breast cancer
     Route: 048
  2. IBRANCE [Suspect]
     Active Substance: PALBOCICLIB
     Route: 048
  3. IBRANCE [Suspect]
     Active Substance: PALBOCICLIB
     Indication: Breast cancer
     Route: 048
  4. IBRANCE [Suspect]
     Active Substance: PALBOCICLIB
     Route: 048
  5. IBRANCE [Suspect]
     Active Substance: PALBOCICLIB
     Route: 048
  6. TEGOPRAZAN [Concomitant]
     Active Substance: TEGOPRAZAN
     Dosage: 50 MG, 1X/DAY
     Route: 048
  7. BRETRA [Concomitant]
     Dosage: 2.5 MG, 1X/DAY, 30 MINUTES AFTER BREAKFAST
     Route: 048
  8. MOXICLE [AMOXICILLIN SODIUM;CLAVULANATE POTASSIUM] [Concomitant]
     Dosage: 1 DF, 3X/DAY
     Route: 048
  9. MYPOL [CODEINE PHOSPHATE;IBUPROFEN;PARACETAMOL] [Concomitant]
     Dosage: 1 DF, 3X/DAY
     Route: 048
  10. PARAMACET SEMI [Concomitant]
     Dosage: 1 DF, 3X/DAY
     Route: 048
  11. VICAFEROL PLUS [Concomitant]
     Dosage: 1 DF, 1X/DAY
     Route: 048
  12. VICAFEROL PLUS [Concomitant]
     Dosage: 1 DF, 1X/DAY (FOR 90 DAYS, 30 MINUTES AFTER BREAKFAST)
     Route: 048

REACTIONS (6)
  - Diabetes mellitus [Unknown]
  - Pain [Unknown]
  - Gastrooesophageal reflux disease [Unknown]
  - Urticaria [Unknown]
  - Off label use [Unknown]
  - Off label use [Unknown]
